FAERS Safety Report 4268745-4 (Version None)
Quarter: 2004Q1

REPORT INFORMATION
  Report Type: 
  Country: None (occurrence: None)
  Receive Date: 20040112
  Receipt Date: 20040112
  Transmission Date: 20041129
  Serious: Yes (Life-Threatening, Hospitalization)
  Sender: FDA-Public Use
  Company Number: None

PATIENT
  Age: 29 Year
  Sex: Male
  Weight: 72.5755 kg

DRUGS (2)
  1. LAMICDOL 50 MG [Suspect]
     Indication: BIPOLAR DISORDER
     Dosage: 50 MG ONCE/DAY ORAL
     Route: 048
  2. LAMICDOL 50 MG [Suspect]
     Indication: DEPRESSION
     Dosage: 50 MG ONCE/DAY ORAL
     Route: 048

REACTIONS (3)
  - RESPIRATORY DISORDER [None]
  - STEVENS-JOHNSON SYNDROME [None]
  - SWOLLEN TONGUE [None]
